FAERS Safety Report 8381212-1 (Version None)
Quarter: 2012Q2

REPORT INFORMATION
  Report Type: 
  Country: None (occurrence: None)
  Receive Date: 20120522
  Receipt Date: 20120509
  Transmission Date: 20120825
  Serious: Yes (Other)
  Sender: FDA-Public Use
  Company Number: FK201201363

PATIENT
  Age: 38 Year
  Sex: Male

DRUGS (1)
  1. METHYLPREDNISOLONE [Suspect]
     Indication: ASTHMA
     Dosage: 40 MG, SINGLE DOSE, INTRAVENOUS
     Route: 042

REACTIONS (2)
  - SKIN TEST POSITIVE [None]
  - ANAPHYLACTIC REACTION [None]
